FAERS Safety Report 16211656 (Version 4)
Quarter: 2019Q4

REPORT INFORMATION
  Report Type: Spontaneous
  Country: AU (occurrence: AU)
  Receive Date: 20190418
  Receipt Date: 20191016
  Transmission Date: 20200122
  Serious: Yes (Death, Other)
  Sender: FDA-Public Use
  Company Number: AU-SA-2019SA100072

PATIENT
  Age: 70 Year

DRUGS (2)
  1. TOUJEO [Suspect]
     Active Substance: INSULIN GLARGINE
     Indication: DIABETES MELLITUS
     Dosage: 45 U, HS
     Route: 058
  2. TOUJEO [Suspect]
     Active Substance: INSULIN GLARGINE
     Dosage: UNK
     Route: 065

REACTIONS (7)
  - Acute kidney injury [Unknown]
  - Overdose [Unknown]
  - Cerebrovascular accident [Fatal]
  - Incorrect dosage administered [Fatal]
  - Hypoglycaemia [Unknown]
  - Drug administered in wrong device [Fatal]
  - Chronic kidney disease [Unknown]

NARRATIVE: CASE EVENT DATE: 20190331
